FAERS Safety Report 16725471 (Version 13)
Quarter: 2020Q3

REPORT INFORMATION
  Report Type: Spontaneous
  Country: PT (occurrence: PT)
  Receive Date: 20190821
  Receipt Date: 20200725
  Transmission Date: 20201102
  Serious: Yes (Life-Threatening)
  Sender: FDA-Public Use
  Company Number: PHHY2019PT188960

PATIENT
  Age: 51 Year
  Sex: Female
  Weight: 72 kg

DRUGS (31)
  1. TOPIRAMATE. [Interacting]
     Active Substance: TOPIRAMATE
     Indication: WEIGHT DECREASED
     Dosage: 35MG BID
     Route: 048
     Dates: start: 201706, end: 201807
  2. BUPROPION. [Interacting]
     Active Substance: BUPROPION
     Indication: WEIGHT CONTROL
     Dosage: 120 MG BID
     Route: 048
     Dates: start: 201706, end: 201807
  3. CASCARA SAGRADA [Interacting]
     Active Substance: FRANGULA PURSHIANA BARK
     Indication: WEIGHT CONTROL
     Dosage: 60 MG, BID
     Route: 048
     Dates: start: 201706, end: 201807
  4. ORANGE C [Interacting]
     Active Substance: ASCORBIC ACID
     Indication: WEIGHT DECREASED
     Dosage: 200 MG (COMPOUNDED PREPARATION)
     Route: 048
     Dates: start: 201706, end: 201807
  5. TRI?GYNERA [Interacting]
     Active Substance: ETHINYL ESTRADIOL\GESTODENE
     Dosage: UNK (0.03 / 0.075 MG)
     Route: 048
  6. FLECAINIDE [Concomitant]
     Active Substance: FLECAINIDE
     Indication: VENTRICULAR ARRHYTHMIA
     Dosage: 100 MG, QD
     Route: 048
  7. METFORMIN [Suspect]
     Active Substance: METFORMIN HYDROCHLORIDE
     Indication: WEIGHT CONTROL
     Dosage: 230 MG, BID
     Route: 048
     Dates: start: 201706, end: 201807
  8. BUPROPION. [Interacting]
     Active Substance: BUPROPION
     Indication: WEIGHT DECREASED
     Dosage: 100 MG, BID
     Route: 048
  9. CHLORDIAZEPOXIDE. [Interacting]
     Active Substance: CHLORDIAZEPOXIDE
     Indication: WEIGHT CONTROL
     Dosage: 10 MG, BID
     Route: 048
     Dates: start: 201706, end: 201807
  10. CHROMIUM PICOLINATE [Interacting]
     Active Substance: CHROMIUM PICOLINATE
     Indication: WEIGHT CONTROL
     Dosage: 200 UG, BID
     Route: 048
  11. TRI?GYNERA [Interacting]
     Active Substance: ETHINYL ESTRADIOL\GESTODENE
     Dosage: UNK
     Route: 048
  12. FUROSEMIDE. [Interacting]
     Active Substance: FUROSEMIDE
     Indication: WEIGHT CONTROL
     Dosage: 30MG BID
     Route: 048
     Dates: start: 201706, end: 201807
  13. CENTELLA ASIATICA [Interacting]
     Active Substance: CENTELLA ASIATICA WHOLE
     Indication: WEIGHT CONTROL
     Dosage: UNK
     Route: 065
  14. SENNA GLYCOSIDES [Suspect]
     Active Substance: HERBALS\SENNOSIDES
     Indication: WEIGHT DECREASED
     Dosage: 20 MG, BID
     Route: 065
  15. ETHINYLESTRADIOL, GESTODENE [Interacting]
     Active Substance: ETHINYL ESTRADIOL\GESTODENE
     Indication: ORAL CONTRACEPTION
     Dosage: 0.08 MG (0.03/0.075 MG), CAPSULA
     Route: 048
  16. ETHINYLESTRADIOL, GESTODENE [Interacting]
     Active Substance: ETHINYL ESTRADIOL\GESTODENE
     Indication: WEIGHT DECREASED
     Dosage: UNK (ETHINYLESTRADIOL 0.02 MG+ GESTODENE 0.075 MG)
     Route: 048
  17. FUROSEMIDE. [Interacting]
     Active Substance: FUROSEMIDE
     Indication: WEIGHT DECREASED
     Dosage: 40 MG, BID
     Route: 048
  18. BUPROPION. [Interacting]
     Active Substance: BUPROPION
     Indication: WEIGHT CONTROL
  19. CHLORDIAZEPOXIDE. [Interacting]
     Active Substance: CHLORDIAZEPOXIDE
     Indication: WEIGHT DECREASED
  20. CHLORDIAZEPOXIDE. [Interacting]
     Active Substance: CHLORDIAZEPOXIDE
     Indication: WEIGHT CONTROL
  21. PHENOLPHTHALEIN [Interacting]
     Active Substance: PHENOLPHTHALEIN
     Indication: WEIGHT CONTROL
     Dosage: 80 MG, BID
     Route: 048
  22. METFORMIN [Interacting]
     Active Substance: METFORMIN HYDROCHLORIDE
     Indication: WEIGHT DECREASED
     Dosage: 200 MG, BID
     Route: 048
  23. TOPIRAMATE. [Interacting]
     Active Substance: TOPIRAMATE
     Dosage: 10 MG, BID
     Route: 048
  24. SENNOSIDES A+B [Interacting]
     Active Substance: SENNOSIDES A AND B
     Indication: WEIGHT CONTROL
     Dosage: UNK
     Route: 065
  25. TRI?GYNERA [Interacting]
     Active Substance: ETHINYL ESTRADIOL\GESTODENE
     Dosage: ETHINYLESTRADIOL: 0.03 MG; GESTODENE: 0.07 MG
     Route: 048
     Dates: start: 2002, end: 201807
  26. LEVOTIROXINA SODICA [Concomitant]
     Active Substance: LEVOTHYROXINE SODIUM
     Indication: HYPOTHYROIDISM
     Dosage: 0.1 MG, QD
     Route: 048
     Dates: start: 2014
  27. FUROSEMIDE. [Interacting]
     Active Substance: FUROSEMIDE
     Indication: WEIGHT CONTROL
     Dosage: 30MG BID
     Route: 048
     Dates: start: 201706, end: 201807
  28. CHROMIUM PICOLINATE [Interacting]
     Active Substance: CHROMIUM PICOLINATE
     Indication: WEIGHT DECREASED
  29. ORLISTAT. [Interacting]
     Active Substance: ORLISTAT
     Indication: WEIGHT CONTROL
     Dosage: 50 MG, BID
     Route: 048
  30. CASCARA SAGRADA [Interacting]
     Active Substance: FRANGULA PURSHIANA BARK
     Indication: WEIGHT DECREASED
  31. TRI?GYNERA [Interacting]
     Active Substance: ETHINYL ESTRADIOL\GESTODENE
     Indication: CONTRACEPTION
     Dosage: 1 DF, QD
     Route: 048
     Dates: start: 2002

REACTIONS (7)
  - Headache [Recovered/Resolved]
  - Drug interaction [Unknown]
  - Product use in unapproved indication [Unknown]
  - Neurological symptom [Unknown]
  - Cerebral venous thrombosis [Recovered/Resolved]
  - Off label use [Unknown]
  - Intentional product misuse [Unknown]

NARRATIVE: CASE EVENT DATE: 20180619
